FAERS Safety Report 15351096 (Version 2)
Quarter: 2019Q1

REPORT INFORMATION
  Report Type: Report from Study
  Country: AU (occurrence: AU)
  Receive Date: 20180905
  Receipt Date: 20190306
  Transmission Date: 20190417
  Serious: Yes (Hospitalization)
  Sender: FDA-Public Use
  Company Number: AU-TOLMAR, INC.-2018AU008753

PATIENT

DRUGS (8)
  1. DIGOXIN. [Concomitant]
     Active Substance: DIGOXIN
  2. ELIQUIS [Concomitant]
     Active Substance: APIXABAN
  3. LIPIDIL [Concomitant]
     Active Substance: FENOFIBRATE
  4. VITAMIN D [Concomitant]
     Active Substance: CHOLECALCIFEROL
     Dosage: 45 MG, EVERY 6 MONTHS
     Route: 058
  5. PANADOL [Concomitant]
     Active Substance: ACETAMINOPHEN
  6. CORDILOX SR [Concomitant]
  7. ELIGARD [Suspect]
     Active Substance: LEUPROLIDE ACETATE
     Indication: PROSTATE CANCER
     Dosage: 45 MG, EVERY 6 MONTHS
     Route: 058
  8. ELIGARD [Suspect]
     Active Substance: LEUPROLIDE ACETATE
     Indication: PROSTATE CANCER
     Dosage: 22.5 MG, 3 MONTHLY
     Route: 058

REACTIONS (1)
  - Bladder neoplasm [Not Recovered/Not Resolved]
